FAERS Safety Report 6284341-1 (Version None)
Quarter: 2009Q3

REPORT INFORMATION
  Report Type: 
  Country: None (occurrence: None)
  Receive Date: 20090723
  Receipt Date: 20090715
  Transmission Date: 20100115
  Serious: Yes (Death)
  Sender: FDA-Public Use
  Company Number: 2008AL005475

PATIENT
  Age: 78 Year
  Sex: Female

DRUGS (25)
  1. DIGOXIN [Suspect]
     Dosage: 0.125MG, DAILY, PO
     Route: 048
  2. LOVENOX [Concomitant]
  3. PANAFIL [Concomitant]
  4. ADVAIR HFA [Concomitant]
  5. DILTIAZEM [Concomitant]
  6. ASPIRIN [Concomitant]
  7. VITAMIN D [Concomitant]
  8. METFORMIN [Concomitant]
  9. PREDNISONE [Concomitant]
  10. LOPRESSOR [Concomitant]
  11. METOPROLOL TARTRATE [Concomitant]
  12. LORAZEPAM [Concomitant]
  13. GLIMEPIRIDE [Concomitant]
  14. ZITHROMAX [Concomitant]
  15. LEVAQUIN [Concomitant]
  16. DETROL [Concomitant]
  17. CIPROFLOXACIN [Concomitant]
  18. FAMOTIDINE [Concomitant]
  19. ACULAR [Concomitant]
  20. PAPAIN [Concomitant]
  21. LOTEMAX [Concomitant]
  22. OXYCONTIN [Concomitant]
  23. AVANDIA [Concomitant]
  24. VALTREX [Concomitant]
  25. CEPHALEXIN [Concomitant]

REACTIONS (14)
  - ANHEDONIA [None]
  - ANXIETY [None]
  - ATRIAL FIBRILLATION [None]
  - DISORIENTATION [None]
  - ECONOMIC PROBLEM [None]
  - EMOTIONAL DISORDER [None]
  - FALL [None]
  - FAMILY STRESS [None]
  - HIP FRACTURE [None]
  - INJURY [None]
  - NAUSEA [None]
  - PAIN [None]
  - SOCIAL PROBLEM [None]
  - VOMITING [None]
